FAERS Safety Report 12786704 (Version 4)
Quarter: 2016Q4

REPORT INFORMATION
  Report Type: Spontaneous
  Country: FR (occurrence: FR)
  Receive Date: 20160927
  Receipt Date: 20161122
  Transmission Date: 20170207
  Serious: Yes (Death, Hospitalization, Other)
  Sender: FDA-Public Use
  Company Number: FR-SHIRE-FR201613304

PATIENT

DRUGS (6)
  1. XAGRID [Suspect]
     Active Substance: ANAGRELIDE HYDROCHLORIDE
     Indication: ESSENTIAL THROMBOCYTHAEMIA
     Dosage: 0.5 MG, 1X/DAY:QD
     Route: 048
     Dates: start: 20120228, end: 20120506
  2. HYDREA [Concomitant]
     Active Substance: HYDROXYUREA
     Dosage: 1 DF, 1X/DAY:QD (ALTERNATING WITH 1 CAP ODD DAYS)
     Dates: start: 2009, end: 20120228
  3. MIANSERIN [Concomitant]
     Active Substance: MIANSERIN
     Indication: DEPRESSION
     Dosage: UNK, UNKNOWN
     Route: 065
  4. HYDREA [Concomitant]
     Active Substance: HYDROXYUREA
     Indication: ESSENTIAL THROMBOCYTHAEMIA
     Dosage: 1 DF, 1X/DAY:QD
     Route: 065
     Dates: start: 20120228
  5. HYDREA [Concomitant]
     Active Substance: HYDROXYUREA
     Dosage: UNK, OTHER (1 CAP ON ODD DAYS + 2 CAPS ON EVEN DAYS)
     Route: 065
     Dates: start: 200506, end: 2009
  6. KARDEGIC [Concomitant]
     Active Substance: ASPIRIN LYSINE
     Indication: ESSENTIAL THROMBOCYTHAEMIA
     Dosage: 75 MG, UNKNOWN
     Route: 065
     Dates: start: 200506

REACTIONS (9)
  - Malaise [Unknown]
  - Pulmonary fibrosis [Fatal]
  - Renal impairment [Unknown]
  - Pneumonia [Unknown]
  - Pulmonary arterial hypertension [Not Recovered/Not Resolved]
  - Respiratory failure [Not Recovered/Not Resolved]
  - Cardiomegaly [Not Recovered/Not Resolved]
  - Hyperuricaemia [Unknown]
  - Headache [Unknown]

NARRATIVE: CASE EVENT DATE: 2012
